FAERS Safety Report 8035138-3 (Version None)
Quarter: 2012Q1

REPORT INFORMATION
  Report Type: 
  Country: None (occurrence: None)
  Receive Date: 20120111
  Receipt Date: 20120103
  Transmission Date: 20120608
  Serious: Yes (Hospitalization)
  Sender: FDA-Public Use
  Company Number: US-BIOGENIDEC-2011BI039948

PATIENT
  Age: 53 Year
  Sex: Female

DRUGS (18)
  1. ZOLPIDEM [Concomitant]
  2. COUMADIN [Concomitant]
  3. CYCLOBENZAPRINE [Concomitant]
  4. PREDNISONE TAB [Concomitant]
  5. HYDROCODONE/ ACETAMINOPHEN 5/325 [Concomitant]
     Indication: PAIN
  6. BISACODYL [Concomitant]
     Indication: CONSTIPATION
     Route: 054
  7. LACTULOSE [Concomitant]
  8. THIORIDAZINE HCL [Concomitant]
  9. POTASSIUM CHLORIDE ER [Concomitant]
  10. PREDNISONE TAB [Concomitant]
     Indication: MULTIPLE SCLEROSIS
  11. COUMADIN [Concomitant]
  12. MYCOPHENOLATE MOFETIL (CELLCEPT) [Concomitant]
  13. TYSABRI [Suspect]
     Indication: MULTIPLE SCLEROSIS
     Route: 042
     Dates: start: 20110515, end: 20110817
  14. NEURONTIN [Concomitant]
  15. LASIX [Concomitant]
  16. PROMETHAZINE [Concomitant]
     Indication: NAUSEA
  17. NORCO 5/325 [Concomitant]
     Indication: PAIN
  18. DIAZEPAM [Concomitant]

REACTIONS (1)
  - MULTIPLE SCLEROSIS RELAPSE [None]
